FAERS Safety Report 8906883 (Version 1)
Quarter: 2012Q4

REPORT INFORMATION
  Report Type: 
  Country: JP (occurrence: JP)
  Receive Date: 20121114
  Receipt Date: 20121114
  Transmission Date: 20130627
  Serious: Yes (Other)
  Sender: FDA-Public Use
  Company Number: JP-PFIZER INC-2012279001

PATIENT
  Sex: Female

DRUGS (3)
  1. PROVERA [Suspect]
     Indication: MENOPAUSAL SYMPTOMS
     Route: 048
  2. ESTRANA [Concomitant]
     Indication: MENOPAUSAL SYMPTOMS
     Route: 062
  3. RIZE [Concomitant]
     Indication: PROPHYLAXIS

REACTIONS (5)
  - Palpitations [Recovered/Resolved]
  - Visual impairment [Unknown]
  - Rash [Unknown]
  - Dizziness [Unknown]
  - Acne [Unknown]
